FAERS Safety Report 14180049 (Version 5)
Quarter: 2020Q1

REPORT INFORMATION
  Report Type: Report from Study
  Country: GB (occurrence: GB)
  Receive Date: 20171110
  Receipt Date: 20200318
  Transmission Date: 20200409
  Serious: Yes (Other)
  Sender: FDA-Public Use
  Company Number: GB-ARIAD-2017GB009219

PATIENT
  Age: 64 Year
  Sex: Male
  Weight: 67 kg

DRUGS (36)
  1. ALLOPURINOL. [Concomitant]
     Active Substance: ALLOPURINOL
     Indication: PROPHYLAXIS
     Dosage: 300 MG, QD
     Route: 048
     Dates: start: 20170927, end: 20171019
  2. ACICLOVIR [Concomitant]
     Active Substance: ACYCLOVIR
     Indication: ENCEPHALITIS
     Dosage: 700 MILLIGRAM, TID
     Route: 042
     Dates: start: 20171011
  3. PARAFFIN [Concomitant]
     Active Substance: PARAFFIN
     Indication: RASH
     Dosage: UNK
     Route: 061
     Dates: start: 20171023
  4. GABAPENTIN. [Concomitant]
     Active Substance: GABAPENTIN
     Indication: PAIN
     Dosage: 600 MG, BID
     Route: 048
     Dates: end: 20171030
  5. PARACETAMOL [Concomitant]
     Active Substance: ACETAMINOPHEN
     Indication: PYREXIA
     Dosage: 1 GRAM
     Route: 048
     Dates: start: 20170928
  6. PARACETAMOL [Concomitant]
     Active Substance: ACETAMINOPHEN
     Indication: PAIN
     Dosage: 1 GRAM
     Route: 042
  7. DASATINIB. [Concomitant]
     Active Substance: DASATINIB
     Indication: CHRONIC MYELOID LEUKAEMIA
     Dosage: 100 MG, QD
     Route: 048
     Dates: start: 20170929, end: 20171009
  8. CO AMOXICLAV                       /00756801/ [Concomitant]
     Active Substance: AMOXICILLIN\CLAVULANIC ACID
     Indication: URINARY TRACT INFECTION
     Dosage: 625 MILLIGRAM, TID
     Route: 048
     Dates: start: 20170929, end: 20170929
  9. LINEZOLID. [Concomitant]
     Active Substance: LINEZOLID
     Indication: ENTEROCOCCAL INFECTION
     Dosage: 600 MILLIGRAM, BID
     Route: 042
     Dates: start: 20171031
  10. MEROPENEM. [Concomitant]
     Active Substance: MEROPENEM
     Indication: PROPHYLAXIS
     Dosage: 2 GRAM, TID
     Route: 042
     Dates: start: 20171017
  11. TIGECYCLINE. [Concomitant]
     Active Substance: TIGECYCLINE
     Indication: INFECTION
     Dosage: 50 MILLIGRAM, BID
     Route: 042
     Dates: start: 20171031
  12. HALOPERIDOL. [Concomitant]
     Active Substance: HALOPERIDOL
     Dosage: 0.5 MILLIGRAM
     Route: 030
     Dates: start: 20171031
  13. FILGRASTIM [Concomitant]
     Active Substance: FILGRASTIM
     Indication: PRODUCT USED FOR UNKNOWN INDICATION
     Dosage: UNK
     Route: 065
  14. PONATINIB [Suspect]
     Active Substance: PONATINIB
     Indication: CHRONIC MYELOID LEUKAEMIA TRANSFORMATION
     Dosage: 30 MG, QD
     Route: 048
     Dates: start: 20171012, end: 20171030
  15. CALCIUM GLUCONATE. [Concomitant]
     Active Substance: CALCIUM GLUCONATE
     Indication: BLOOD CALCIUM DECREASED
     Dosage: 4.4 MILLIMOLE
     Route: 042
     Dates: start: 20171017
  16. CIPROFLOXACIN. [Concomitant]
     Active Substance: CIPROFLOXACIN
     Indication: PROPHYLAXIS
     Dosage: 500 MG, BID
     Route: 048
     Dates: start: 20171024, end: 20171026
  17. NICOTINE. [Concomitant]
     Active Substance: NICOTINE
     Indication: NICOTINE DEPENDENCE
     Dosage: UNK, QD
     Route: 061
     Dates: start: 20171013, end: 20171027
  18. AMIKACIN. [Concomitant]
     Active Substance: AMIKACIN
     Indication: SEPSIS
     Dosage: 1000 MILLIGRAM
     Route: 042
     Dates: start: 20171014, end: 20171030
  19. BETAMETHASONE. [Concomitant]
     Active Substance: BETAMETHASONE
     Indication: RASH
     Dosage: UNK, BID
     Route: 061
     Dates: start: 20171023
  20. CYTARABINE. [Concomitant]
     Active Substance: CYTARABINE
     Indication: PRODUCT USED FOR UNKNOWN INDICATION
     Dosage: UNK
     Route: 065
  21. ENOXAPARIN [Concomitant]
     Active Substance: ENOXAPARIN
     Indication: PROPHYLAXIS
     Dosage: 40 MILLIGRAM, QD
     Route: 058
     Dates: start: 20170928, end: 20171015
  22. TAMSULOSIN [Concomitant]
     Active Substance: TAMSULOSIN
     Indication: BENIGN PROSTATIC HYPERPLASIA
     Dosage: 400 MICROGRAM, QD
     Route: 048
     Dates: start: 20171007, end: 20171030
  23. HALOPERIDOL. [Concomitant]
     Active Substance: HALOPERIDOL
     Indication: AGITATION
     Dosage: 0.5 MILLIGRAM
     Route: 048
     Dates: start: 20171031
  24. IDARUBICIN [Concomitant]
     Active Substance: IDARUBICIN
     Indication: PRODUCT USED FOR UNKNOWN INDICATION
     Dosage: UNK
     Route: 065
  25. AMBISOME [Concomitant]
     Active Substance: AMPHOTERICIN B
     Indication: INFECTION
     Dosage: 200 MILLIGRAM, QD
     Route: 042
     Dates: start: 20171030
  26. COTRIMOXAZOLE [Concomitant]
     Active Substance: SULFAMETHOXAZOLE\TRIMETHOPRIM
     Indication: PROPHYLAXIS
     Dosage: 480 MILLIGRAM
     Route: 048
     Dates: start: 20171011, end: 20171030
  27. HYDROXYCARBAMIDE [Concomitant]
     Active Substance: HYDROXYUREA
     Indication: CHRONIC MYELOID LEUKAEMIA
     Dosage: 2 GRAM, QD
     Route: 048
     Dates: start: 20170927, end: 20171006
  28. FLUDARABINE [Concomitant]
     Active Substance: FLUDARABINE PHOSPHATE
     Indication: PRODUCT USED FOR UNKNOWN INDICATION
     Dosage: UNK
     Route: 065
  29. ELECTROLYTES NOS [Concomitant]
     Active Substance: ELECTROLYTES NOS
     Indication: ELECTROLYTE IMBALANCE
     Dosage: 1000 MILLILITER
     Route: 042
     Dates: start: 20170928
  30. POSACONAZOLE [Concomitant]
     Active Substance: POSACONAZOLE
     Indication: FUNGAL INFECTION
     Dosage: 300 MILLIGRAM, BID
     Route: 048
     Dates: start: 20171023, end: 20171028
  31. TEICOPLANIN [Concomitant]
     Active Substance: TEICOPLANIN
     Indication: FEBRILE NEUTROPENIA
     Dosage: 800 MILLIGRAM, BID
     Route: 042
     Dates: start: 20171026, end: 20171027
  32. MICAFUNGIN. [Concomitant]
     Active Substance: MICAFUNGIN SODIUM
     Dosage: 100 MILLIGRAM, QD
     Route: 042
     Dates: start: 20171029
  33. GENTAMICIN. [Concomitant]
     Active Substance: GENTAMICIN
     Indication: CATHETER MANAGEMENT
     Dosage: 80 MILLIGRAM, QD
     Route: 042
     Dates: start: 20170928, end: 20170928
  34. CLOBETASONE [Concomitant]
     Active Substance: CLOBETASONE
     Indication: RASH
     Dosage: UNK, QD
     Route: 061
     Dates: start: 20171023
  35. DEXAMETHASONE. [Concomitant]
     Active Substance: DEXAMETHASONE
     Indication: BRAIN OEDEMA
     Dosage: 8 MG, QD
     Route: 042
     Dates: start: 20171031
  36. MICAFUNGIN. [Concomitant]
     Active Substance: MICAFUNGIN SODIUM
     Indication: PROPHYLAXIS
     Dosage: 100 MILLIGRAM, QD
     Route: 042
     Dates: start: 20171019, end: 20171022

REACTIONS (2)
  - Confusional state [Recovered/Resolved]
  - Cerebral venous sinus thrombosis [Recovered/Resolved]

NARRATIVE: CASE EVENT DATE: 20171101
